FAERS Safety Report 8826015 (Version 2)
Quarter: 2015Q3

REPORT INFORMATION
  Report Type: Report from Study
  Country: US (occurrence: US)
  Receive Date: 20121005
  Receipt Date: 20150807
  Transmission Date: 20151125
  Serious: Yes (Death)
  Sender: FDA-Public Use
  Company Number: US-ROCHE-1134202

PATIENT
  Sex: Male
  Weight: 105.78 kg

DRUGS (46)
  1. TYLENOL [Concomitant]
     Active Substance: ACETAMINOPHEN
     Dosage: DAY 1 IN 21 DAY CYCLE
     Route: 048
     Dates: start: 19991103
  2. BENADRYL [Concomitant]
     Active Substance: DIPHENHYDRAMINE HYDROCHLORIDE
     Dosage: DAY 1 IN 21 DAY CYCLE
     Route: 042
     Dates: start: 19991103
  3. CYTOXAN [Concomitant]
     Active Substance: CYCLOPHOSPHAMIDE
     Route: 065
     Dates: start: 19991201
  4. CYTOXAN [Concomitant]
     Active Substance: CYCLOPHOSPHAMIDE
     Route: 065
     Dates: start: 19991222
  5. ADRIAMYCIN [Concomitant]
     Active Substance: DOXORUBICIN HYDROCHLORIDE
     Dosage: 115 MG IVP INTRAVENOUS PYELOGRAM
     Route: 065
     Dates: start: 19991105
  6. VINCRISTINE [Concomitant]
     Active Substance: VINCRISTINE
     Route: 065
     Dates: start: 19991222
  7. PREDNISONE. [Concomitant]
     Active Substance: PREDNISONE
     Route: 058
  8. ANZEMET [Concomitant]
     Active Substance: DOLASETRON MESYLATE
     Route: 065
     Dates: start: 19991201
  9. RITUXAN [Suspect]
     Active Substance: RITUXIMAB
     Route: 065
  10. BENADRYL [Concomitant]
     Active Substance: DIPHENHYDRAMINE HYDROCHLORIDE
     Route: 065
     Dates: start: 20000207
  11. CYTOXAN [Concomitant]
     Active Substance: CYCLOPHOSPHAMIDE
     Route: 065
     Dates: start: 20000114
  12. ADRIAMYCIN [Concomitant]
     Active Substance: DOXORUBICIN HYDROCHLORIDE
     Route: 065
     Dates: start: 20000209
  13. PREDNISONE. [Concomitant]
     Active Substance: PREDNISONE
     Route: 065
     Dates: start: 19991201
  14. DECADRON [Concomitant]
     Active Substance: DEXAMETHASONE
     Dosage: INTRAVENOUS PYELOGRAM
     Route: 042
     Dates: start: 19991105
  15. RITUXAN [Suspect]
     Active Substance: RITUXIMAB
     Route: 065
     Dates: start: 19991129
  16. ADRIAMYCIN [Concomitant]
     Active Substance: DOXORUBICIN HYDROCHLORIDE
     Route: 065
     Dates: start: 20000114
  17. PREDNISONE. [Concomitant]
     Active Substance: PREDNISONE
     Route: 065
     Dates: start: 20000209
  18. ANZEMET [Concomitant]
     Active Substance: DOLASETRON MESYLATE
     Route: 065
     Dates: start: 19991222
  19. RITUXAN [Suspect]
     Active Substance: RITUXIMAB
     Route: 065
     Dates: start: 19991220
  20. TYLENOL [Concomitant]
     Active Substance: ACETAMINOPHEN
     Route: 065
     Dates: start: 20000207
  21. CYTOXAN [Concomitant]
     Active Substance: CYCLOPHOSPHAMIDE
     Route: 065
     Dates: start: 20000209
  22. PREDNISONE. [Concomitant]
     Active Substance: PREDNISONE
     Route: 065
     Dates: start: 20000114
  23. RITUXAN [Suspect]
     Active Substance: RITUXIMAB
     Indication: NON-HODGKIN^S LYMPHOMA
     Dosage: 375MG/M2, DAY 1 IN 21 DAY CYCLE
     Route: 042
     Dates: start: 19991103
  24. BENADRYL [Concomitant]
     Active Substance: DIPHENHYDRAMINE HYDROCHLORIDE
     Route: 065
     Dates: start: 19991220
  25. VINCRISTINE [Concomitant]
     Active Substance: VINCRISTINE
     Route: 065
     Dates: start: 19991201
  26. ANZEMET [Concomitant]
     Active Substance: DOLASETRON MESYLATE
     Dosage: DAY 3, IN 50 CC NORMAL SALINE
     Route: 042
     Dates: start: 19991105
  27. ANZEMET [Concomitant]
     Active Substance: DOLASETRON MESYLATE
     Route: 065
     Dates: start: 20000114
  28. RITUXAN [Suspect]
     Active Substance: RITUXIMAB
     Route: 065
  29. TYLENOL [Concomitant]
     Active Substance: ACETAMINOPHEN
     Route: 065
     Dates: start: 19991129
  30. BENADRYL [Concomitant]
     Active Substance: DIPHENHYDRAMINE HYDROCHLORIDE
     Route: 065
     Dates: start: 19991129
  31. CYTOXAN [Concomitant]
     Active Substance: CYCLOPHOSPHAMIDE
     Dosage: 1725 MG, D5, 500 CC OVER 1 HOUR/D3
     Route: 065
     Dates: start: 19991105
  32. PREDNISONE. [Concomitant]
     Active Substance: PREDNISONE
     Dosage: D3-D5 IN 21 DAY CYCLE
     Route: 048
     Dates: start: 19991105
  33. DECADRON [Concomitant]
     Active Substance: DEXAMETHASONE
     Route: 065
     Dates: start: 19991201
  34. DECADRON [Concomitant]
     Active Substance: DEXAMETHASONE
     Route: 065
     Dates: start: 19991222
  35. DECADRON [Concomitant]
     Active Substance: DEXAMETHASONE
     Route: 065
     Dates: start: 20000114
  36. DECADRON [Concomitant]
     Active Substance: DEXAMETHASONE
     Route: 065
     Dates: start: 20000209
  37. RITUXAN [Suspect]
     Active Substance: RITUXIMAB
     Route: 065
     Dates: start: 20000207
  38. TYLENOL [Concomitant]
     Active Substance: ACETAMINOPHEN
     Route: 065
     Dates: start: 19991220
  39. CYTOXAN [Concomitant]
     Active Substance: CYCLOPHOSPHAMIDE
     Route: 065
  40. ADRIAMYCIN [Concomitant]
     Active Substance: DOXORUBICIN HYDROCHLORIDE
     Route: 065
     Dates: start: 19991201
  41. VINCRISTINE [Concomitant]
     Active Substance: VINCRISTINE
     Dosage: INTRAVENOUS PYELOGRAM ON D3
     Route: 065
     Dates: start: 19991105
  42. VINCRISTINE [Concomitant]
     Active Substance: VINCRISTINE
     Route: 065
     Dates: start: 20000209
  43. ADRIAMYCIN [Concomitant]
     Active Substance: DOXORUBICIN HYDROCHLORIDE
     Route: 065
     Dates: start: 19991222
  44. VINCRISTINE [Concomitant]
     Active Substance: VINCRISTINE
     Route: 065
     Dates: start: 20000114
  45. PREDNISONE. [Concomitant]
     Active Substance: PREDNISONE
     Route: 065
     Dates: start: 19991222
  46. ANZEMET [Concomitant]
     Active Substance: DOLASETRON MESYLATE
     Route: 065
     Dates: start: 20000209

REACTIONS (5)
  - White blood cell count decreased [Unknown]
  - Oedema peripheral [Unknown]
  - Platelet count decreased [Unknown]
  - Death [Fatal]
  - Joint dislocation [Unknown]
